FAERS Safety Report 20193347 (Version 1)
Quarter: 2021Q4

REPORT INFORMATION
  Report Type: Spontaneous
  Country: PL (occurrence: PL)
  Receive Date: 20211216
  Receipt Date: 20211216
  Transmission Date: 20220303
  Serious: No
  Sender: FDA-Public Use
  Company Number: PL-NOVARTISPH-NVSC2021PL203349

PATIENT
  Age: 62 Year
  Sex: Female

DRUGS (3)
  1. AMLODIPINE [Interacting]
     Active Substance: AMLODIPINE BESYLATE
     Indication: Product used for unknown indication
     Dosage: UNK UNK, UNKNOWN
     Route: 065
  2. TERBINAFINE [Interacting]
     Active Substance: TERBINAFINE
     Indication: Product used for unknown indication
     Dosage: UNK UNK, UNKNOWN
     Route: 065
  3. GINKGO [Interacting]
     Active Substance: GINKGO
     Indication: Product used for unknown indication
     Dosage: UNK UNK, UNKNOWN
     Route: 065

REACTIONS (3)
  - Tinnitus [Recovered/Resolved]
  - Drug interaction [Unknown]
  - Medication error [Unknown]
